FAERS Safety Report 11644824 (Version 2)
Quarter: 2015Q4

REPORT INFORMATION
  Report Type: Spontaneous
  Country: JP (occurrence: JP)
  Receive Date: 20151020
  Receipt Date: 20151127
  Transmission Date: 20160304
  Serious: Yes (Hospitalization, Other)
  Sender: FDA-Public Use
  Company Number: PHHY2015JP131797

PATIENT
  Sex: Female
  Weight: 52 kg

DRUGS (2)
  1. BAYASPIRIN [Concomitant]
     Active Substance: ASPIRIN
     Indication: PRODUCT USED FOR UNKNOWN INDICATION
     Route: 065
  2. VOTRIENT [Suspect]
     Active Substance: PAZOPANIB HYDROCHLORIDE
     Indication: RENAL CELL CARCINOMA
     Dosage: 800 MG, QD
     Route: 048
     Dates: start: 20150910, end: 20150912

REACTIONS (9)
  - Dyspnoea [Unknown]
  - Cardiac failure [Recovered/Resolved]
  - Ejection fraction [Unknown]
  - Abdominal discomfort [Unknown]
  - Abdominal pain [Recovered/Resolved]
  - Pericardial effusion [Unknown]
  - Pancreatitis acute [Recovered/Resolved]
  - Stress cardiomyopathy [Not Recovered/Not Resolved]
  - Palpitations [Unknown]

NARRATIVE: CASE EVENT DATE: 20150913
